FAERS Safety Report 9409690 (Version 1)
Quarter: 2013Q3

REPORT INFORMATION
  Report Type: Report from Study
  Country: BR (occurrence: BR)
  Receive Date: 20130719
  Receipt Date: 20130719
  Transmission Date: 20140515
  Serious: Yes (Death, Hospitalization)
  Sender: FDA-Public Use
  Company Number: PHHY2013BR076235

PATIENT
  Sex: Male
  Weight: 88 kg

DRUGS (2)
  1. EXELON PATCH [Suspect]
     Indication: DEMENTIA ALZHEIMER^S TYPE
     Dosage: 1 DF
     Route: 062
  2. MANTIDAN [Concomitant]
     Indication: PARKINSON^S DISEASE
     Dosage: UNK UKN, UNK

REACTIONS (10)
  - Cerebrovascular accident [Fatal]
  - Communication disorder [Unknown]
  - Hypophagia [Unknown]
  - Thermal burn [Unknown]
  - Blood creatinine increased [Unknown]
  - Renal disorder [Unknown]
  - Hypokinesia [Unknown]
  - Tremor [Unknown]
  - Agitation [Unknown]
  - Weight decreased [Unknown]
